FAERS Safety Report 5811499-8 (Version None)
Quarter: 2008Q3

REPORT INFORMATION
  Report Type: 
  Country: None (occurrence: None)
  Receive Date: 20080716
  Receipt Date: 20080708
  Transmission Date: 20090109
  Serious: Yes (Death, Other)
  Sender: FDA-Public Use
  Company Number: US-NOVOPROD-276352

PATIENT
  Age: 52 Year
  Sex: Male
  Weight: 70 kg

DRUGS (6)
  1. NOVOSEVEN [Suspect]
     Indication: HAEMORRHAGE
     Dosage: 4.8 MG, SINGLE
     Route: 042
     Dates: start: 20080607, end: 20080607
  2. NOVOSEVEN [Suspect]
     Dosage: 2.4 MG, SINGLE
     Route: 042
     Dates: start: 20080607, end: 20080607
  3. RED BLOOD CELLS [Concomitant]
     Indication: DRUG USE FOR UNKNOWN INDICATION
     Dosage: 20 U, SINGLE
     Route: 042
  4. FRESH FROZEN PLASMA [Concomitant]
     Indication: DRUG USE FOR UNKNOWN INDICATION
     Dosage: 6 U, SINGLE
     Route: 042
  5. PLATELETS [Concomitant]
     Indication: DRUG USE FOR UNKNOWN INDICATION
     Dosage: 10 U, SINGLE
     Route: 042
  6. LACTATED RINGER'S [Concomitant]
     Indication: DRUG USE FOR UNKNOWN INDICATION
     Dosage: UNKNOWN
     Route: 042

REACTIONS (2)
  - DRUG INEFFECTIVE [None]
  - HAEMORRHAGE [None]
